FAERS Safety Report 24358988 (Version 1)
Quarter: 2024Q3

REPORT INFORMATION
  Report Type: Report from Study
  Country: US (occurrence: US)
  Receive Date: 20240924
  Receipt Date: 20240924
  Transmission Date: 20241016
  Serious: No
  Sender: SUNOVION
  Company Number: US-SUMITOMO PHARMA SWITZERLAND GMBH-2024SPA002289

PATIENT

DRUGS (1)
  1. ORGOVYX [Suspect]
     Active Substance: RELUGOLIX
     Indication: Prostate cancer
     Dosage: 120 MG, QD
     Route: 048
     Dates: start: 20240709

REACTIONS (8)
  - Breast tenderness [Unknown]
  - Weight decreased [Unknown]
  - Gynaecomastia [Unknown]
  - Asthenia [Unknown]
  - Fatigue [Unknown]
  - Hot flush [Unknown]
  - Incorrect dose administered [Unknown]
  - Extra dose administered [Unknown]
